FAERS Safety Report 9746014 (Version 2)
Quarter: 2013Q4

REPORT INFORMATION
  Report Type: Report from Study
  Country: AR (occurrence: AR)
  Receive Date: 20131211
  Receipt Date: 20131213
  Transmission Date: 20140711
  Serious: Yes (Death, Hospitalization)
  Sender: FDA-Public Use
  Company Number: PHHY2013AR144969

PATIENT
  Sex: Male

DRUGS (5)
  1. LEPONEX / CLOZARIL [Suspect]
     Indication: SEVERE MENTAL RETARDATION
     Dosage: 250 MG, DAILY
     Route: 048
     Dates: start: 20131002, end: 20131130
  2. PROMETHAZINE HYDROCHLORIDE [Concomitant]
     Dosage: UNK UKN, UNK
  3. LEVOMEPROMAZINE [Concomitant]
     Dosage: UNK UKN, UNK
  4. CLOTIAPINE [Concomitant]
     Dosage: UNK UKN, UNK
  5. CLONAZEPAM [Concomitant]
     Dosage: UNK UKN, UNK

REACTIONS (5)
  - Septic shock [Fatal]
  - Pneumonia [Fatal]
  - Haemoptysis [Not Recovered/Not Resolved]
  - Leukopenia [Not Recovered/Not Resolved]
  - Neutropenia [Not Recovered/Not Resolved]
